FAERS Safety Report 20531114 (Version 2)
Quarter: 2022Q1

REPORT INFORMATION
  Report Type: Spontaneous
  Country: US (occurrence: US)
  Receive Date: 20220301
  Receipt Date: 20220308
  Transmission Date: 20220424
  Serious: Yes (Death)
  Sender: FDA-Public Use
  Company Number: US-CELLTRION INC.-2022US002254

PATIENT

DRUGS (5)
  1. TRUXIMA [Suspect]
     Active Substance: RITUXIMAB-ABBS
     Indication: Granulomatosis with polyangiitis
     Dosage: EVERY 6 WEEKS OR EVERY 6 MONTHS
     Route: 065
  2. NIFEDIPINE [Concomitant]
     Active Substance: NIFEDIPINE
  3. PREDNISONE [Concomitant]
     Active Substance: PREDNISONE
  4. METOPROLOL [Concomitant]
     Active Substance: METOPROLOL
  5. FUROSEMIDE [Concomitant]
     Active Substance: FUROSEMIDE
     Indication: Fluid retention
     Dosage: UNK

REACTIONS (3)
  - COVID-19 [Fatal]
  - Condition aggravated [Fatal]
  - Granulomatosis with polyangiitis [Fatal]

NARRATIVE: CASE EVENT DATE: 20210801
